FAERS Safety Report 6661382-3 (Version None)
Quarter: 2010Q1

REPORT INFORMATION
  Report Type: 
  Country: None (occurrence: None)
  Receive Date: 20100331
  Receipt Date: 20100324
  Transmission Date: 20100710
  Serious: Yes (Hospitalization, Other)
  Sender: FDA-Public Use
  Company Number: PHHO2010PE04645

PATIENT
  Sex: Female
  Weight: 73 kg

DRUGS (9)
  1. BLINDED ALISKIREN ALI+TAB+CF [Suspect]
     Indication: CARDIAC FAILURE
     Dosage: CODE NOT BROKEN
     Route: 048
     Dates: start: 20100124
  2. BLINDED ENALAPRIL COMP-ENA+ [Suspect]
     Indication: CARDIAC FAILURE
     Dosage: CODE NOT BROKEN
     Route: 048
     Dates: start: 20100124
  3. BLINDED NO TREATMENT RECEIVED NOMED [Suspect]
     Indication: CARDIAC FAILURE
     Dosage: CODE NOT BROKEN
     Route: 048
     Dates: start: 20100124
  4. COMPARATOR ENALAPRIL [Suspect]
     Indication: CARDIAC FAILURE
     Dosage: 20 MG
     Route: 048
  5. ALISKIREN [Suspect]
     Indication: CARDIAC FAILURE
     Dosage: 300 MG
  6. CLOPIDOGREL [Concomitant]
  7. ASPIRIN [Concomitant]
  8. METFORMIN (GLUCOPHAGE) [Concomitant]
     Indication: DIABETES MELLITUS
  9. FUROSEMIDE [Concomitant]
     Indication: CARDIAC FAILURE

REACTIONS (10)
  - DIZZINESS [None]
  - ELECTROCARDIOGRAM POOR R-WAVE PROGRESSION [None]
  - HYPOTENSION [None]
  - INFECTED SKIN ULCER [None]
  - LOCALISED OEDEMA [None]
  - MALAISE [None]
  - NAUSEA [None]
  - OEDEMA PERIPHERAL [None]
  - SEPSIS [None]
  - VOMITING [None]
